FAERS Safety Report 7315668-X (Version None)
Quarter: 2011Q1

REPORT INFORMATION
  Report Type: 
  Country: None (occurrence: None)
  Receive Date: 20110225
  Receipt Date: 20110215
  Transmission Date: 20110831
  Serious: Yes (Other)
  Sender: FDA-Public Use
  Company Number: ES-SANOFI-AVENTIS-2011SA009756

PATIENT
  Sex: Male

DRUGS (1)
  1. TAXOTERE [Suspect]
     Route: 042
     Dates: start: 20100526, end: 20100526

REACTIONS (5)
  - HOT FLUSH [None]
  - OXYGEN SATURATION DECREASED [None]
  - FLUSHING [None]
  - MALAISE [None]
  - DYSPNOEA [None]
